FAERS Safety Report 7795621-2 (Version None)
Quarter: 2011Q4

REPORT INFORMATION
  Report Type: 
  Country: None (occurrence: None)
  Receive Date: 20111004
  Receipt Date: 20110929
  Transmission Date: 20120403
  Serious: Yes (Hospitalization, Other)
  Sender: FDA-Public Use
  Company Number: CA-GLAXOSMITHKLINE-A0946470A

PATIENT
  Sex: Female

DRUGS (5)
  1. SYNTHROID [Concomitant]
  2. TYKERB [Suspect]
     Indication: BREAST CANCER METASTATIC
     Dosage: 1250MG PER DAY
     Route: 048
     Dates: start: 20110922
  3. CALCIUM CARBONATE [Concomitant]
  4. XELODA [Suspect]
     Indication: PRODUCT USED FOR UNKNOWN INDICATION
     Route: 065
  5. MAXERAN [Concomitant]

REACTIONS (3)
  - METASTASIS [None]
  - BILE DUCT OBSTRUCTION [None]
  - LIVER DISORDER [None]
